FAERS Safety Report 4363076-6 (Version None)
Quarter: 2004Q2

REPORT INFORMATION
  Report Type: 
  Country: None (occurrence: None)
  Receive Date: 20040517
  Receipt Date: 20040322
  Transmission Date: 20050107
  Serious: No
  Sender: FDA-Public Use
  Company Number: S04-USA-01783-01

PATIENT
  Age: 88 Year
  Sex: Male

DRUGS (7)
  1. NAMENDA [Suspect]
     Dosage: 15 MG QD PO
     Route: 048
     Dates: start: 20040214, end: 20040220
  2. NAMENDA [Suspect]
     Dosage: 10 MG BID PO
     Route: 048
     Dates: start: 20040221, end: 20040227
  3. NAMENDA [Suspect]
     Dosage: 15 MG QD PO
     Route: 048
     Dates: start: 20040228
  4. NAMENDA [Suspect]
     Dosage: 5 MG QD PO
     Route: 048
     Dates: start: 20040131, end: 20040206
  5. NAMENDA [Suspect]
     Dosage: 10 MG QD PO
     Route: 048
     Dates: start: 20040207, end: 20040213
  6. EXELON [Concomitant]
  7. HYDROCHLOROTHIAZIDE [Concomitant]

REACTIONS (2)
  - FATIGUE [None]
  - HYPERTENSION [None]
